FAERS Safety Report 9485817 (Version 1)
Quarter: 2013Q3

REPORT INFORMATION
  Report Type: Report from Study
  Country: BR (occurrence: BR)
  Receive Date: 20130829
  Receipt Date: 20130829
  Transmission Date: 20140515
  Serious: Yes (Hospitalization, Other)
  Sender: FDA-Public Use
  Company Number: PHHY2013BR093394

PATIENT
  Age: 74 Year
  Sex: Female
  Weight: 50 kg

DRUGS (5)
  1. GALVUS MET [Suspect]
     Indication: DIABETES MELLITUS
     Dosage: 1 DF (850/50 MG), BID (ONE IN THE MORNING AND ONE AT NIGHT)
     Route: 048
     Dates: start: 201304, end: 20130822
  2. DIOVAN [Suspect]
     Indication: TACHYCARDIA
     Dosage: 320 MG, DAILY
     Route: 048
  3. DIOVAN [Suspect]
     Indication: OFF LABEL USE
  4. ANCORON [Suspect]
     Indication: HYPERTENSION
     Dosage: 200 MG, DAILY
     Route: 048
     Dates: start: 2013
  5. ANCORON [Suspect]
     Indication: ARTERIAL OCCLUSIVE DISEASE

REACTIONS (6)
  - Infarction [Recovering/Resolving]
  - Malaise [Recovered/Resolved]
  - Balance disorder [Recovered/Resolved]
  - Dizziness [Recovered/Resolved]
  - Migraine [Recovered/Resolved]
  - Nausea [Recovered/Resolved]
